FAERS Safety Report 11199960 (Version 3)
Quarter: 2016Q2

REPORT INFORMATION
  Report Type: Report from Study
  Country: JP (occurrence: JP)
  Receive Date: 20150618
  Receipt Date: 20160404
  Transmission Date: 20160815
  Serious: Yes (Hospitalization, Other)
  Sender: FDA-Public Use
  Company Number: JP-EISAI MEDICAL RESEARCH-EC-2015-007783

PATIENT
  Age: 54 Year
  Sex: Female
  Weight: 46 kg

DRUGS (5)
  1. GASTROM [Concomitant]
     Active Substance: ECABET
  2. WHITE PETROLATUM [Concomitant]
     Active Substance: PETROLATUM
  3. NEXIUM [Concomitant]
     Active Substance: ESOMEPRAZOLE MAGNESIUM
  4. HALAVEN [Suspect]
     Active Substance: ERIBULIN MESYLATE
     Indication: BREAST CANCER
     Route: 041
     Dates: start: 20150603, end: 20150603
  5. RANMARK [Concomitant]
     Active Substance: DENOSUMAB

REACTIONS (4)
  - Neutropenia [Recovered/Resolved]
  - Interstitial lung disease [Recovered/Resolved]
  - Leukopenia [Recovered/Resolved]
  - Pyrexia [Recovered/Resolved]

NARRATIVE: CASE EVENT DATE: 20150607
